FAERS Safety Report 10246871 (Version 1)
Quarter: 2014Q2

REPORT INFORMATION
  Report Type: Spontaneous
  Country: US (occurrence: None)
  Receive Date: 20140617
  Receipt Date: 20140617
  Transmission Date: 20141212
  Serious: Yes (Hospitalization, Other)
  Sender: FDA-Public Use
  Company Number: None

PATIENT
  Age: 25 Year
  Sex: Female
  Weight: 90.72 kg

DRUGS (1)
  1. PROGESTERONE [Suspect]
     Indication: PROPHYLAXIS
     Route: 030
     Dates: start: 201403

REACTIONS (4)
  - Uterine hypertonus [None]
  - Oligohydramnios [None]
  - Small for dates baby [None]
  - Complication of pregnancy [None]
